FAERS Safety Report 5514010-4 (Version None)
Quarter: 2007Q4

REPORT INFORMATION
  Report Type: 
  Country: None (occurrence: None)
  Receive Date: 20071107
  Receipt Date: 20060927
  Transmission Date: 20080405
  Serious: Yes (Other)
  Sender: FDA-Public Use
  Company Number: 2006RL000344

PATIENT
  Age: 53 Year
  Sex: Male
  Weight: 89.3586 kg

DRUGS (5)
  1. RYTHMOL SR [Suspect]
     Indication: DRUG USE FOR UNKNOWN INDICATION
     Dosage: 225 MG;BID
     Dates: start: 20051005, end: 20060101
  2. LOTREL /01621601/ [Concomitant]
  3. ASPIRIN [Concomitant]
  4. TOPROL-XL [Concomitant]
  5. PRILOSEC /00661201/ [Concomitant]

REACTIONS (4)
  - ASTHENIA [None]
  - DRY MOUTH [None]
  - FATIGUE [None]
  - SYSTEMIC LUPUS ERYTHEMATOSUS [None]
